FAERS Safety Report 5964327-4 (Version None)
Quarter: 2008Q4

REPORT INFORMATION
  Report Type: 
  Country: None (occurrence: None)
  Receive Date: 20081124
  Receipt Date: 20081112
  Transmission Date: 20090506
  Serious: Yes (Congenital Anomaly, Other)
  Sender: FDA-Public Use
  Company Number: US-PFIZER INC-2007095378

PATIENT
  Sex: Female

DRUGS (7)
  1. ZOLOFT [Suspect]
     Indication: TENSION HEADACHE
     Route: 064
     Dates: start: 20010101
  2. ZOLOFT [Suspect]
     Indication: DEPRESSION
  3. ZOLOFT [Suspect]
     Indication: INSOMNIA
  4. ZOLOFT [Suspect]
     Indication: DRUG INTOLERANCE
  5. PAXIL [Concomitant]
     Dates: start: 20011113, end: 20011126
  6. PROZAC [Concomitant]
  7. VITAMIN TAB [Concomitant]

REACTIONS (3)
  - DRUG EXPOSURE DURING PREGNANCY [None]
  - POST-TRAUMATIC STRESS DISORDER [None]
  - VENTRICULAR SEPTAL DEFECT [None]
